FAERS Safety Report 15778405 (Version 1)
Quarter: 2018Q4

REPORT INFORMATION
  Report Type: Spontaneous
  Country: GB (occurrence: GB)
  Receive Date: 20181231
  Receipt Date: 20181231
  Transmission Date: 20190205
  Serious: Yes (Death)
  Sender: FDA-Public Use
  Company Number: GB-009507513-1812GBR011897

PATIENT
  Age: 43 Year
  Sex: Male
  Weight: 73.2 kg

DRUGS (4)
  1. RIBAVIRIN. [Suspect]
     Active Substance: RIBAVIRIN
     Indication: CHRONIC HEPATITIS C
     Dosage: 400MG MORNING, 600MG NIGHT
     Route: 048
     Dates: start: 20181025
  2. FERROUS FUMARATE [Concomitant]
     Active Substance: FERROUS FUMARATE
  3. RISPERIDONE. [Concomitant]
     Active Substance: RISPERIDONE
  4. EPCLUSA [Suspect]
     Active Substance: SOFOSBUVIR\VELPATASVIR
     Indication: CHRONIC HEPATITIS C
     Dosage: 400MG/100MG
     Route: 048
     Dates: start: 20181026

REACTIONS (1)
  - Death [Fatal]

NARRATIVE: CASE EVENT DATE: 20181026
